FAERS Safety Report 7805303-6 (Version None)
Quarter: 2011Q4

REPORT INFORMATION
  Report Type: 
  Country: None (occurrence: None)
  Receive Date: 20111010
  Receipt Date: 20111003
  Transmission Date: 20120403
  Serious: Yes (Other)
  Sender: FDA-Public Use
  Company Number: CA-PFIZER INC-2011235626

PATIENT
  Age: 73 Year
  Sex: Female

DRUGS (6)
  1. ATENOLOL [Concomitant]
     Indication: HYPERTENSION
     Dosage: UNK
  2. XALATAN [Suspect]
     Indication: GLAUCOMA
     Dosage: 1 GTT IN BOTH EYES, 1X/DAY
     Route: 047
     Dates: start: 20060101
  3. PILOPINE HS [Concomitant]
     Indication: INTRAOCULAR PRESSURE TEST ABNORMAL
     Dosage: ONCE AT NIGHT
     Dates: start: 20070101
  4. NORVASC [Concomitant]
     Indication: HYPERTENSION
     Dosage: UNK
  5. COZAAR [Concomitant]
     Indication: HYPERTENSION
     Dosage: UNK
  6. COSOPT [Concomitant]
     Indication: GLAUCOMA
     Dosage: ONCE IN BOTH EYES
     Route: 047
     Dates: start: 20050101

REACTIONS (1)
  - EYE OPERATION [None]
